FAERS Safety Report 6778889-0 (Version None)
Quarter: 2010Q2

REPORT INFORMATION
  Report Type: 
  Country: None (occurrence: None)
  Receive Date: 20100618
  Receipt Date: 20100609
  Transmission Date: 20101027
  Serious: Yes (Hospitalization, Other)
  Sender: FDA-Public Use
  Company Number: US-JNJFOC-20100603380

PATIENT
  Sex: Female

DRUGS (2)
  1. ORTHO TRI-CYCLEN [Suspect]
     Indication: CONTRACEPTION
     Route: 048
  2. ZITHROMAX [Interacting]
     Indication: SINUSITIS
     Route: 048

REACTIONS (13)
  - DIZZINESS [None]
  - DRUG DOSE OMISSION [None]
  - DRUG INTERACTION [None]
  - FOREIGN BODY [None]
  - HEART RATE INCREASED [None]
  - MALAISE [None]
  - MUSCLE TWITCHING [None]
  - POSTNASAL DRIP [None]
  - PRODUCT SIZE ISSUE [None]
  - SINUS DISORDER [None]
  - THROAT IRRITATION [None]
  - URINE COLOUR ABNORMAL [None]
  - VERTIGO [None]
